FAERS Safety Report 4821909-0 (Version None)
Quarter: 2005Q4

REPORT INFORMATION
  Report Type: 
  Country: None (occurrence: None)
  Receive Date: 20051103
  Receipt Date: 20051021
  Transmission Date: 20060501
  Serious: Yes (Hospitalization)
  Sender: FDA-Public Use
  Company Number: 2005118357

PATIENT
  Age: 15 Year
  Sex: Female

DRUGS (1)
  1. CLINDAMYCIN HCL [Suspect]
     Indication: IMPETIGO
     Dosage: 450 MG (150 MG, TID), ORAL
     Route: 048
     Dates: start: 20050812, end: 20050818

REACTIONS (4)
  - BACK PAIN [None]
  - DYSPHAGIA [None]
  - OESOPHAGITIS [None]
  - SALMONELLOSIS [None]
